FAERS Safety Report 21634368 (Version 1)
Quarter: 2022Q4

REPORT INFORMATION
  Report Type: Spontaneous
  Country: NL (occurrence: NL)
  Receive Date: 20221123
  Receipt Date: 20221123
  Transmission Date: 20230113
  Serious: Yes (Other)
  Sender: FDA-Public Use
  Company Number: NL-TAKEDA-2022TUS086656

PATIENT
  Age: 60 Year
  Sex: Male

DRUGS (3)
  1. HUMAN IMMUNOGLOBULIN G [Suspect]
     Active Substance: HUMAN IMMUNOGLOBULIN G
     Indication: Product used for unknown indication
     Dosage: 80 GRAM, Q3WEEKS
     Route: 042
  2. NIFEDIPINE [Concomitant]
     Active Substance: NIFEDIPINE
  3. FOSINOPRIL [Concomitant]
     Active Substance: FOSINOPRIL

REACTIONS (2)
  - Lupus-like syndrome [Recovered/Resolved]
  - Product use issue [Unknown]
